FAERS Safety Report 9137360 (Version 1)
Quarter: 2013Q1

REPORT INFORMATION
  Report Type: Spontaneous
  Country: US (occurrence: US)
  Receive Date: 20130304
  Receipt Date: 20130304
  Transmission Date: 20140127
  Serious: No
  Sender: FDA-Public Use
  Company Number: US-009507513-1303USA000401

PATIENT
  Sex: 0

DRUGS (3)
  1. JANUVIA [Suspect]
     Indication: TYPE 2 DIABETES MELLITUS
     Dosage: UNK
     Route: 048
     Dates: start: 20130214
  2. GLYBURIDE [Suspect]
  3. METFORMIN [Suspect]

REACTIONS (1)
  - Blood glucose abnormal [Not Recovered/Not Resolved]
